FAERS Safety Report 9774792 (Version 1)
Quarter: 2013Q4

REPORT INFORMATION
  Report Type: Spontaneous
  Country: US (occurrence: US)
  Receive Date: 20131220
  Receipt Date: 20131220
  Transmission Date: 20140711
  Serious: No
  Sender: FDA-Public Use
  Company Number: US-GALDERMA-US12415881

PATIENT
  Age: 42 Year
  Sex: Female
  Weight: 53 kg

DRUGS (4)
  1. METROGEL (METRONIDAZOLE) TOPICAL GEL, 0.75% [Suspect]
     Indication: RASH
     Dosage: 0.75%
     Route: 061
     Dates: start: 20121201
  2. INSULIN PUMP - LH [Concomitant]
     Indication: DIABETES MELLITUS
     Route: 058
  3. DOVE SENSITIVE SKIN CLEANSER [Concomitant]
     Indication: THERAPEUTIC SKIN CARE TOPICAL
     Route: 061
  4. NEUTROGENA MAKEUP REMOVER [Concomitant]
     Indication: THERAPEUTIC SKIN CARE TOPICAL
     Route: 061

REACTIONS (3)
  - Drug ineffective for unapproved indication [Not Recovered/Not Resolved]
  - Off label use [Not Recovered/Not Resolved]
  - Self-medication [None]
